FAERS Safety Report 9340636 (Version 1)
Quarter: 2013Q2

REPORT INFORMATION
  Report Type: Report from Study
  Country: US (occurrence: US)
  Receive Date: 20130610
  Receipt Date: 20130610
  Transmission Date: 20140414
  Serious: Yes (Hospitalization)
  Sender: FDA-Public Use
  Company Number: US-ABBOTT-13P-163-1097830-00

PATIENT
  Sex: Male
  Weight: 118.04 kg

DRUGS (6)
  1. HUMIRA [Suspect]
     Indication: RHEUMATOID ARTHRITIS
     Dates: start: 2008, end: 2011
  2. HUMIRA [Suspect]
     Dates: end: 201302
  3. HUMIRA [Suspect]
     Dates: start: 201304
  4. LISINOPRIL [Concomitant]
     Indication: BLOOD PRESSURE
  5. CELEBREX [Concomitant]
     Indication: PAIN
  6. ASPIRIN [Concomitant]
     Indication: CARDIAC DISORDER
     Dosage: 81 MG DAILY

REACTIONS (4)
  - Gait disturbance [Recovered/Resolved]
  - Arthralgia [Recovering/Resolving]
  - Upper respiratory tract infection [Recovered/Resolved]
  - Arthralgia [Recovering/Resolving]
